FAERS Safety Report 8121254-4 (Version None)
Quarter: 2012Q1

REPORT INFORMATION
  Report Type: 
  Country: None (occurrence: None)
  Receive Date: 20120208
  Receipt Date: 20120202
  Transmission Date: 20120608
  Serious: Yes (Other)
  Sender: FDA-Public Use
  Company Number: IE-ROXANE LABORATORIES, INC.-2012-RO-00593RO

PATIENT
  Age: 42 Year
  Sex: Male

DRUGS (3)
  1. CITALOPRAM [Suspect]
     Indication: MAJOR DEPRESSION
     Dosage: 20 MG
     Route: 048
  2. RISPERIDONE [Suspect]
     Route: 048
  3. RISPERIDONE [Suspect]
     Indication: MAJOR DEPRESSION
     Dosage: 4 MG
     Route: 048

REACTIONS (1)
  - TARDIVE DYSKINESIA [None]
